FAERS Safety Report 24615174 (Version 1)
Quarter: 2024Q4

REPORT INFORMATION
  Report Type: Spontaneous
  Country: US (occurrence: US)
  Receive Date: 20241113
  Receipt Date: 20241113
  Transmission Date: 20250115
  Serious: No
  Sender: NOVO NORDISK
  Company Number: US-NOVOPROD-1086301

PATIENT

DRUGS (1)
  1. NOVOLOG MIX 70/30 [Suspect]
     Active Substance: INSULIN ASPART
     Indication: Product used for unknown indication
     Dosage: 40 IU, QD
     Route: 058

REACTIONS (6)
  - Fall [Unknown]
  - Neck pain [Unknown]
  - Asthenia [Unknown]
  - Injection site mass [Unknown]
  - Injection site bruising [Unknown]
  - Device issue [Unknown]
